FAERS Safety Report 18111971 (Version 2)
Quarter: 2020Q4

REPORT INFORMATION
  Report Type: Report from Study
  Country: None (occurrence: CA)
  Receive Date: 20200805
  Receipt Date: 20201204
  Transmission Date: 20210113
  Serious: Yes (Death)
  Sender: FDA-Public Use
  Company Number: CA-ABBVIE-20K-028-3510462-00

PATIENT
  Sex: Male

DRUGS (1)
  1. IMBRUVICA [Suspect]
     Active Substance: IBRUTINIB
     Indication: CHRONIC LYMPHOCYTIC LEUKAEMIA REFRACTORY
     Route: 048
     Dates: start: 20200611

REACTIONS (1)
  - Death [Fatal]
